FAERS Safety Report 9656541 (Version 2)
Quarter: 2013Q4

REPORT INFORMATION
  Report Type: Spontaneous
  Country: DE (occurrence: DE)
  Receive Date: 20131030
  Receipt Date: 20131030
  Transmission Date: 20140711
  Serious: Yes (Other)
  Sender: FDA-Public Use
  Company Number: PHHY2013DE116150

PATIENT
  Sex: 0

DRUGS (1)
  1. IMMUNOSPORIN [Suspect]

REACTIONS (2)
  - Macular oedema [Unknown]
  - Visual impairment [Unknown]
